FAERS Safety Report 6684529-1 (Version None)
Quarter: 2010Q2

REPORT INFORMATION
  Report Type: 
  Country: None (occurrence: None)
  Receive Date: 20100416
  Receipt Date: 20100409
  Transmission Date: 20101027
  Serious: Yes (Other)
  Sender: FDA-Public Use
  Company Number: BR-ROCHE-694720

PATIENT

DRUGS (5)
  1. XELODA [Suspect]
     Indication: BREAST CANCER
     Route: 065
     Dates: start: 20091001, end: 20100401
  2. AVASTIN [Suspect]
     Indication: BREAST CANCER
     Dosage: OTHER INDICATION: BREAST CANCER WITH BONE METASTATIS
     Route: 065
     Dates: start: 20091001, end: 20100401
  3. AVASTIN [Suspect]
     Route: 065
     Dates: start: 20100401
  4. TAXOL [Concomitant]
     Indication: BREAST CANCER
  5. TAXOTERE [Concomitant]
     Dates: start: 20100401

REACTIONS (1)
  - METASTASES TO BONE [None]
